FAERS Safety Report 15248133 (Version 1)
Quarter: 2018Q3

REPORT INFORMATION
  Report Type: Spontaneous
  Country: US (occurrence: US)
  Receive Date: 20180715
  Receipt Date: 20180715
  Transmission Date: 20181010
  Serious: Yes (Disabling)
  Sender: FDA-Public Use
  Company Number: None

PATIENT
  Age: 38 Year
  Sex: Female
  Weight: 58.5 kg

DRUGS (2)
  1. HEAD AND SHOULDERS SENSITIVE SCALP CARE [Suspect]
     Active Substance: PYRITHIONE ZINC
     Indication: HYPERAESTHESIA
     Route: 061
     Dates: end: 20180115
  2. HEAD AND SHOULDERS SENSITIVE SCALP CARE [Suspect]
     Active Substance: PYRITHIONE ZINC
     Indication: PRURITUS
     Route: 061
     Dates: end: 20180115

REACTIONS (3)
  - Drug hypersensitivity [None]
  - Dermatitis contact [None]
  - Loss of personal independence in daily activities [None]

NARRATIVE: CASE EVENT DATE: 20180110
